FAERS Safety Report 9763390 (Version 1)
Quarter: 2013Q4

REPORT INFORMATION
  Report Type: Spontaneous
  Country: US (occurrence: US)
  Receive Date: 20131216
  Receipt Date: 20131216
  Transmission Date: 20140711
  Serious: No
  Sender: FDA-Public Use
  Company Number: US-BIOGENIDEC-2013BI107678

PATIENT
  Sex: Female

DRUGS (18)
  1. TECFIDERA [Suspect]
     Indication: MULTIPLE SCLEROSIS
     Route: 048
     Dates: start: 201310
  2. TECFIDERA [Suspect]
     Indication: MULTIPLE SCLEROSIS
     Route: 048
     Dates: start: 201310
  3. CYMBALTA [Concomitant]
  4. METHOTREXATE [Concomitant]
  5. LAMOTRIGINE [Concomitant]
  6. OMEPRAZOLE [Concomitant]
  7. GABAPENTIN [Concomitant]
  8. BACLOFEN [Concomitant]
  9. KLOR-CON [Concomitant]
  10. ASPIRIN [Concomitant]
  11. FOLIC ACID [Concomitant]
  12. AMYRA [Concomitant]
  13. BIOTIN [Concomitant]
  14. RANITIDINE [Concomitant]
  15. ULTRAM [Concomitant]
  16. VITAMIN D [Concomitant]
  17. VITAMIN C [Concomitant]
  18. CALCIUM [Concomitant]

REACTIONS (2)
  - Pain in extremity [Unknown]
  - Drug ineffective [Unknown]
